FAERS Safety Report 5714778-8 (Version None)
Quarter: 2008Q2

REPORT INFORMATION
  Report Type: 
  Country: None (occurrence: None)
  Receive Date: 20080423
  Receipt Date: 20061214
  Transmission Date: 20081010
  Serious: Yes (Death, Other)
  Sender: FDA-Public Use
  Company Number: GB-ROCHE-475024

PATIENT
  Sex: Male
  Weight: 67.5 kg

DRUGS (11)
  1. CAPECITABINE [Suspect]
     Dosage: GIVEN ON DAYS 1-14 EVERY 3 WEEK CYCLE.
     Route: 048
     Dates: start: 20030915, end: 20031122
  2. CAPECITABINE [Suspect]
     Dosage: GIVEN FOR 14 DAYS FOLLOWED BY 1 WEEK REST.
     Route: 048
     Dates: start: 20031013, end: 20031102
  3. CAPECITABINE [Suspect]
     Dosage: GIVEN FOR 14 DAYS FOLLOWED BY 1 WEEK REST.
     Route: 048
     Dates: start: 20031110, end: 20031122
  4. GEMCITABINE [Suspect]
     Dosage: GIVEN ON DAYS 1, 8 AND 15 OF EVERY FOUR WEEK CYCLE.
     Route: 042
     Dates: start: 20030915, end: 20031027
  5. GEMCITABINE [Suspect]
     Dosage: GIVEN ON DAYS 1, 8 AND 15 OF EVERY FOUR WEEK CYCLE.
     Route: 042
     Dates: start: 20031110, end: 20031117
  6. CITALOPRAM HYDROBROMIDE [Concomitant]
     Indication: DEPRESSION
     Route: 048
     Dates: end: 20031226
  7. METOCLOPRAMIDE [Concomitant]
     Indication: VOMITING
     Route: 048
     Dates: start: 20030915, end: 20031130
  8. MEGESTROL ACETATE [Concomitant]
     Indication: APPETITE DISORDER
     Route: 048
     Dates: start: 20030929, end: 20031123
  9. DICLOFENAC SODIUM [Concomitant]
     Indication: PAIN
     Route: 048
     Dates: end: 20031122
  10. MIXTARD HUMAN 70/30 [Concomitant]
     Dosage: REPORTED AS HUMAN MIXTARD 30/70 INSULIN.
     Route: 058
     Dates: start: 20030620, end: 20031122
  11. FORTIJUICE [Concomitant]
     Indication: DECREASED APPETITE
     Route: 048
     Dates: end: 20031218

REACTIONS (5)
  - ABDOMINAL PAIN UPPER [None]
  - ANAL FISSURE [None]
  - DEATH [None]
  - GASTROINTESTINAL HAEMORRHAGE [None]
  - RECTAL HAEMORRHAGE [None]
